FAERS Safety Report 20480316 (Version 1)
Quarter: 2022Q1

REPORT INFORMATION
  Report Type: Spontaneous
  Country: CA (occurrence: CA)
  Receive Date: 20220216
  Receipt Date: 20220216
  Transmission Date: 20220423
  Serious: Yes (Other)
  Sender: FDA-Public Use
  Company Number: CA-PERRIGO-22CA001777

PATIENT
  Age: 29 Year

DRUGS (1)
  1. TESTOSTERONE CYPIONATE [Suspect]
     Active Substance: TESTOSTERONE CYPIONATE
     Indication: Transgender hormonal therapy
     Dosage: UNKNOWN, UNKNOWN
     Route: 030

REACTIONS (1)
  - Idiopathic intracranial hypertension [Not Recovered/Not Resolved]
